FAERS Safety Report 20917923 (Version 1)
Quarter: 2022Q2

REPORT INFORMATION
  Report Type: Report from Study
  Country: CN (occurrence: CN)
  Receive Date: 20220606
  Receipt Date: 20220606
  Transmission Date: 20220721
  Serious: Yes (Hospitalization, Other)
  Sender: FDA-Public Use
  Company Number: CN-CELGENE-CHN-20220302154

PATIENT
  Age: 33 Year
  Sex: Male
  Weight: 85 kg

DRUGS (51)
  1. LENALIDOMIDE [Suspect]
     Active Substance: LENALIDOMIDE
     Indication: Non-Hodgkin^s lymphoma
     Route: 048
     Dates: start: 20220214, end: 20220219
  2. MOSUNETUZUMAB [Suspect]
     Active Substance: MOSUNETUZUMAB
     Indication: Non-Hodgkin^s lymphoma
     Dosage: 30 MILLIGRAM
     Route: 042
     Dates: start: 20220121, end: 20220214
  3. SODIUM BICARBONATE [Concomitant]
     Active Substance: SODIUM BICARBONATE
     Indication: Product used for unknown indication
     Dosage: 1 IN 1 D
     Route: 042
     Dates: start: 20220121, end: 20220122
  4. SODIUM BICARBONATE [Concomitant]
     Active Substance: SODIUM BICARBONATE
     Dosage: 1 IN 1 D
     Route: 042
     Dates: start: 20220321, end: 20220321
  5. VITAMIN B6 [Concomitant]
     Active Substance: PYRIDOXINE HYDROCHLORIDE
     Indication: Product used for unknown indication
     Dosage: 1 IN 1 D
     Route: 042
     Dates: start: 20220128, end: 20220129
  6. VITAMIN B6 [Concomitant]
     Active Substance: PYRIDOXINE HYDROCHLORIDE
     Dosage: 1 IN 1 D
     Route: 042
     Dates: start: 20220203, end: 20220204
  7. VITAMIN B6 [Concomitant]
     Active Substance: PYRIDOXINE HYDROCHLORIDE
     Dosage: 1 IN 1 D
     Route: 042
     Dates: start: 20220210, end: 20220214
  8. VITAMIN B6 [Concomitant]
     Active Substance: PYRIDOXINE HYDROCHLORIDE
     Dosage: 1 IN 1 D
     Route: 042
     Dates: start: 20220226, end: 20220307
  9. VITAMIN B6 [Concomitant]
     Active Substance: PYRIDOXINE HYDROCHLORIDE
     Dosage: 1 IN 1 D
     Route: 042
     Dates: start: 20220321, end: 20220321
  10. VITAMIN B6 [Concomitant]
     Active Substance: PYRIDOXINE HYDROCHLORIDE
  11. METHYLPREDNISOLONE SODIUM SUCCINATE [Concomitant]
     Active Substance: METHYLPREDNISOLONE SODIUM SUCCINATE
     Indication: Product used for unknown indication
     Dosage: 1 IN 1 AS REQUIRED
     Route: 042
     Dates: start: 20220128, end: 20220128
  12. METHYLPREDNISOLONE SODIUM SUCCINATE [Concomitant]
     Active Substance: METHYLPREDNISOLONE SODIUM SUCCINATE
     Dosage: 1 IN 1 AS REQUIRED
     Route: 042
     Dates: start: 20220204, end: 20220204
  13. METHYLPREDNISOLONE SODIUM SUCCINATE [Concomitant]
     Active Substance: METHYLPREDNISOLONE SODIUM SUCCINATE
     Dosage: 1 IN 1 AS REQUIRED
     Route: 042
     Dates: start: 20220214, end: 20220214
  14. METHYLPREDNISOLONE SODIUM SUCCINATE [Concomitant]
     Active Substance: METHYLPREDNISOLONE SODIUM SUCCINATE
     Dosage: 1 IN 1 D
     Route: 042
     Dates: start: 20220301, end: 20220302
  15. METHYLPREDNISOLONE SODIUM SUCCINATE [Concomitant]
     Active Substance: METHYLPREDNISOLONE SODIUM SUCCINATE
     Dosage: 1 IN 1 D
     Route: 045
     Dates: start: 20220321, end: 20220321
  16. METHYLPREDNISOLONE SODIUM SUCCINATE [Concomitant]
     Active Substance: METHYLPREDNISOLONE SODIUM SUCCINATE
     Dosage: 1 IN 1 D
     Route: 030
     Dates: start: 20220214, end: 20220214
  17. ESCITALOPRAM OXALATE [Concomitant]
     Active Substance: ESCITALOPRAM OXALATE
     Indication: Product used for unknown indication
     Dosage: 1 IN 1 D
     Route: 048
     Dates: start: 20220113
  18. OXAZEPAM [Concomitant]
     Active Substance: OXAZEPAM
     Indication: Anxiety
     Dosage: 1 IN 2 D
     Route: 048
     Dates: start: 20220113
  19. OXAZEPAM [Concomitant]
     Active Substance: OXAZEPAM
     Dosage: 1 IN 1 D
     Route: 048
     Dates: start: 20220113
  20. SULFAMETHOXAZOLE [Concomitant]
     Active Substance: SULFAMETHOXAZOLE
     Indication: Infection prophylaxis
     Dosage: 1 IN 1 D
     Route: 048
     Dates: start: 20220128
  21. ESOMEPRAZOLE SODIUM [Concomitant]
     Active Substance: ESOMEPRAZOLE SODIUM
     Indication: Product used for unknown indication
     Dosage: 2 IN 1 D
     Route: 042
     Dates: start: 20220225, end: 20220307
  22. HUMAN IMMUNOGLOBULIN G [Concomitant]
     Active Substance: HUMAN IMMUNOGLOBULIN G
     Indication: Product used for unknown indication
     Dosage: 1 IN 1 D
     Route: 042
     Dates: start: 20220227, end: 20220227
  23. ONDANSETRON HYDROCHLORIDE [Concomitant]
     Active Substance: ONDANSETRON HYDROCHLORIDE
     Indication: Nausea
     Dosage: 1 IN 1 D
     Route: 042
     Dates: start: 20220227, end: 20220227
  24. ONDANSETRON HYDROCHLORIDE [Concomitant]
     Active Substance: ONDANSETRON HYDROCHLORIDE
     Indication: Vomiting
  25. ONDANSETRON HYDROCHLORIDE [Concomitant]
     Active Substance: ONDANSETRON HYDROCHLORIDE
     Indication: Cholecystitis
  26. LORATADINE [Concomitant]
     Active Substance: LORATADINE
     Indication: Rash
     Dosage: 1 IN 1 D
     Route: 048
     Dates: start: 20220220, end: 20220224
  27. LORATADINE [Concomitant]
     Active Substance: LORATADINE
     Dosage: 1 IN 1 D
     Route: 048
     Dates: start: 20220321
  28. VITAMIN C [Concomitant]
     Active Substance: ASCORBIC ACID
     Indication: Product used for unknown indication
     Dosage: 1 IN 1 D
     Route: 042
     Dates: start: 20220128, end: 20220128
  29. VITAMIN C [Concomitant]
     Active Substance: ASCORBIC ACID
     Dosage: 1 IN 1 D
     Route: 042
     Dates: start: 20220203, end: 20220203
  30. VITAMIN C [Concomitant]
     Active Substance: ASCORBIC ACID
     Dosage: 1 IN 1 D
     Route: 042
     Dates: start: 20220210, end: 20220214
  31. VITAMIN C [Concomitant]
     Active Substance: ASCORBIC ACID
     Route: 042
     Dates: start: 20220226, end: 20220307
  32. VITAMIN C [Concomitant]
     Active Substance: ASCORBIC ACID
     Route: 042
     Dates: start: 20220121, end: 20220121
  33. VITAMIN C [Concomitant]
     Active Substance: ASCORBIC ACID
     Route: 042
     Dates: start: 20220321, end: 20220321
  34. IBUPROFEN [Concomitant]
     Active Substance: IBUPROFEN
     Indication: Product used for unknown indication
     Dosage: 1 IN 1 AS REQUIRED
     Route: 048
     Dates: start: 20220128, end: 20220128
  35. IBUPROFEN [Concomitant]
     Active Substance: IBUPROFEN
     Dosage: 1 IN 1 AS REQUIRED
     Route: 048
     Dates: start: 20220204, end: 20220204
  36. IBUPROFEN [Concomitant]
     Active Substance: IBUPROFEN
     Dosage: 1 IN 1 AS REQUIRED
     Route: 048
     Dates: start: 20220214, end: 20220214
  37. IBUPROFEN [Concomitant]
     Active Substance: IBUPROFEN
     Route: 048
     Dates: start: 20220321, end: 20220321
  38. PROMETHAZINE HYDROCHLORIDE [Concomitant]
     Active Substance: PROMETHAZINE HYDROCHLORIDE
     Indication: Product used for unknown indication
     Dosage: 1 IN 1 D
     Route: 030
     Dates: start: 20220204, end: 20220204
  39. PROMETHAZINE HYDROCHLORIDE [Concomitant]
     Active Substance: PROMETHAZINE HYDROCHLORIDE
     Dosage: 1 IN 1 D
     Route: 030
     Dates: start: 20220214, end: 20220214
  40. PROMETHAZINE HYDROCHLORIDE [Concomitant]
     Active Substance: PROMETHAZINE HYDROCHLORIDE
     Route: 030
     Dates: start: 20220321, end: 20220321
  41. CAFFEIC ACID [Concomitant]
     Active Substance: CAFFEIC ACID
     Indication: Platelet count decreased
     Dosage: 1 IN 3 D
     Route: 048
     Dates: start: 20220223
  42. RECOMBINANT HUMAN GRANULOCYTE COLONY STIMULATING FACTOR INJECTION [Concomitant]
     Indication: White blood cell count decreased
     Dosage: 1 IN 1 D
     Route: 058
     Dates: start: 20220211, end: 20220211
  43. RECOMBINANT HUMAN GRANULOCYTE COLONY STIMULATING FACTOR INJECTION [Concomitant]
     Indication: Neutrophil count decreased
     Route: 058
     Dates: start: 20220226, end: 20220226
  44. RECOMBINANT HUMAN GRANULOCYTE COLONY STIMULATING FACTOR INJECTION [Concomitant]
     Route: 058
     Dates: start: 20220223, end: 20220223
  45. RECOMBINANT HUMAN GRANULOCYTE COLONY STIMULATING FACTOR INJECTION [Concomitant]
     Route: 058
     Dates: start: 20220226, end: 20220226
  46. COMPOUND AMINO ACIDS INJECTION (18AA-IX) [Concomitant]
     Indication: Product used for unknown indication
     Dosage: 1 IN 1 D
     Route: 042
     Dates: start: 20220225, end: 20220225
  47. COMPOUND AMINO ACIDS INJECTION (18AA-IX) [Concomitant]
     Dosage: 1 IN 1 D
     Route: 042
     Dates: start: 20220226, end: 20220226
  48. BICYCLOL [Concomitant]
     Active Substance: BICYCLOL
     Indication: Product used for unknown indication
     Dosage: 1 IN 3 D
     Route: 048
     Dates: start: 20220113
  49. ACYCLOVIR [Concomitant]
     Active Substance: ACYCLOVIR
     Indication: Infection prophylaxis
     Dosage: 1 IN 3 D
     Route: 048
     Dates: start: 20220128
  50. ACETYLCYSTEINE [Concomitant]
     Active Substance: ACETYLCYSTEINE
     Indication: Productive cough
     Route: 055
     Dates: start: 20220225, end: 20220225
  51. THROMBOPOIETIN [Concomitant]
     Active Substance: THROMBOPOIETIN
     Indication: Platelet count decreased
     Dosage: DF=U
     Route: 058
     Dates: start: 20220223, end: 20220304

REACTIONS (1)
  - Cholecystitis [Recovered/Resolved]

NARRATIVE: CASE EVENT DATE: 20220224
